FAERS Safety Report 6968736-6 (Version None)
Quarter: 2010Q3

REPORT INFORMATION
  Report Type: 
  Country: None (occurrence: None)
  Receive Date: 20100907
  Receipt Date: 20100831
  Transmission Date: 20110219
  Serious: Yes (Hospitalization, Other)
  Sender: FDA-Public Use
  Company Number: US-MERCK-1008USA00665

PATIENT
  Age: 44 Year
  Sex: Male

DRUGS (12)
  1. IVEMEND [Suspect]
     Indication: PROPHYLAXIS OF NAUSEA AND VOMITING
     Route: 042
     Dates: start: 20100721
  2. IVEMEND [Suspect]
     Route: 042
     Dates: start: 20100804
  3. IVEMEND [Suspect]
     Route: 042
     Dates: start: 20100609
  4. IVEMEND [Suspect]
     Route: 042
     Dates: start: 20100707
  5. CISPLATIN [Concomitant]
     Route: 065
  6. CAMPTOSAR [Concomitant]
     Route: 065
  7. VITAMIN D (UNSPECIFIED) [Concomitant]
     Route: 065
  8. FENTANYL [Concomitant]
     Route: 065
  9. ASCORBIC ACID [Concomitant]
     Route: 065
  10. PRILOSEC [Concomitant]
     Route: 065
  11. COMPAZINE [Concomitant]
     Route: 065
  12. ATIVAN [Concomitant]
     Route: 065

REACTIONS (12)
  - AGITATION [None]
  - BLOOD PRESSURE ABNORMAL [None]
  - BODY TEMPERATURE DECREASED [None]
  - DYSTONIA [None]
  - FOOT DEFORMITY [None]
  - FOOT FRACTURE [None]
  - HYPERTENSION [None]
  - HYPOKALAEMIA [None]
  - HYPOMAGNESAEMIA [None]
  - HYPONATRAEMIA [None]
  - LACTIC ACIDOSIS [None]
  - TREMOR [None]
